FAERS Safety Report 16064116 (Version 1)
Quarter: 2019Q1

REPORT INFORMATION
  Report Type: Report from Study
  Country: IT (occurrence: IT)
  Receive Date: 20190312
  Receipt Date: 20190312
  Transmission Date: 20190418
  Serious: Yes (Other)
  Sender: FDA-Public Use
  Company Number: IT-MYLANLABS-2019M1022266

PATIENT
  Age: 74 Year
  Sex: Male

DRUGS (3)
  1. LOBIVON [Suspect]
     Active Substance: NEBIVOLOL HYDROCHLORIDE
     Indication: HYPERTENSION
     Dosage: UNK
  2. CARDIOASPIRIN [Suspect]
     Active Substance: ASPIRIN
     Indication: ENDARTERECTOMY
     Dosage: UNK
  3. HYDROCHLOROTHIAZIDE/IRBESARTAN [Suspect]
     Active Substance: HYDROCHLOROTHIAZIDE\IRBESARTAN
     Indication: HYPERTENSION
     Dosage: UNK

REACTIONS (7)
  - Tachycardia [Recovering/Resolving]
  - Vertigo [Recovering/Resolving]
  - Chest discomfort [Recovering/Resolving]
  - Atrial fibrillation [Recovering/Resolving]
  - Eructation [Recovering/Resolving]
  - Asthenia [Recovering/Resolving]
  - Dyspnoea [Recovering/Resolving]

NARRATIVE: CASE EVENT DATE: 20181008
